FAERS Safety Report 7167475 (Version 5)
Quarter: 2013Q4

REPORT INFORMATION
  Report Type: Spontaneous
  Country: US (occurrence: US)
  Receive Date: 20091105
  Receipt Date: 20131212
  Transmission Date: 20140711
  Serious: Yes (Other)
  Sender: FDA-Public Use
  Company Number: US-BAYER-200937440NA

PATIENT
  Age: 29 Year
  Sex: Female
  Weight: 57 kg

DRUGS (7)
  1. YAZ [Suspect]
     Indication: CONTRACEPTION
     Route: 048
     Dates: start: 20070108, end: 20090505
  2. YAZ [Suspect]
     Indication: PREMENSTRUAL SYNDROME
  3. NIFEDIPINE [Concomitant]
     Dates: start: 2005
  4. AZITHROMYCIN [Concomitant]
  5. FLUCONAZOLE [Concomitant]
  6. AMOXICILLIN [Concomitant]
  7. NAPROXEN [Concomitant]

REACTIONS (5)
  - Gallbladder disorder [Unknown]
  - Abdominal pain upper [Unknown]
  - Flatulence [Unknown]
  - Abdominal distension [Unknown]
  - Cholecystitis chronic [None]
